FAERS Safety Report 5802842-4 (Version None)
Quarter: 2008Q3

REPORT INFORMATION
  Report Type: 
  Country: None (occurrence: None)
  Receive Date: 20080708
  Receipt Date: 20080310
  Transmission Date: 20090109
  Serious: Yes (Hospitalization)
  Sender: FDA-Public Use
  Company Number: FR-GENENTECH-227989

PATIENT
  Sex: Female
  Weight: 49 kg

DRUGS (5)
  1. RITUXIMAB [Suspect]
     Indication: B-CELL LYMPHOMA
     Dosage: 545 MG, UNK
     Route: 042
     Dates: start: 20060316
  2. DOXORUBICIN HCL [Suspect]
     Indication: B-CELL LYMPHOMA
     Dosage: 74 MG, UNK
     Route: 042
     Dates: start: 20060316
  3. CYCLOPHOSPHAMIDE [Suspect]
     Indication: B-CELL LYMPHOMA
     Dosage: 1087 MG, UNK
     Route: 042
     Dates: start: 20060316
  4. VINCRISTINE [Suspect]
     Indication: B-CELL LYMPHOMA
     Dosage: 2 MG, UNK
     Dates: start: 20060316
  5. METHYLPREDNISOLONE [Suspect]
     Indication: B-CELL LYMPHOMA
     Dosage: 57.5 MG, UNK
     Route: 048
     Dates: start: 20060316

REACTIONS (1)
  - ABDOMINAL PAIN UPPER [None]
